FAERS Safety Report 25498890 (Version 2)
Quarter: 2025Q3

REPORT INFORMATION
  Report Type: Spontaneous
  Country: CA (occurrence: CA)
  Receive Date: 20250701
  Receipt Date: 20250707
  Transmission Date: 20251020
  Serious: Yes (Death, Life-Threatening, Hospitalization, Disabling, Congenital Anomaly, Other)
  Sender: Haleon PLC
  Company Number: CA-HALEON-2249613

PATIENT
  Age: 40 Year
  Sex: Female
  Weight: 96 kg

DRUGS (69)
  1. DICLOFENAC [Suspect]
     Active Substance: DICLOFENAC
     Indication: Product used for unknown indication
  2. PHENYLEPHRINE HYDROCHLORIDE [Suspect]
     Active Substance: PHENYLEPHRINE HYDROCHLORIDE
     Indication: Rheumatoid arthritis
  3. DICLOFENAC SODIUM [Suspect]
     Active Substance: DICLOFENAC SODIUM
     Indication: Product used for unknown indication
  4. DICLOFENAC SODIUM [Suspect]
     Active Substance: DICLOFENAC SODIUM
  5. DICLOFENAC SODIUM [Suspect]
     Active Substance: DICLOFENAC SODIUM
  6. AIMOVIG [Suspect]
     Active Substance: ERENUMAB-AOOE
     Indication: Migraine
  7. CANDESARTAN CILEXETIL [Suspect]
     Active Substance: CANDESARTAN CILEXETIL
     Indication: Migraine
     Route: 048
  8. COSENTYX [Suspect]
     Active Substance: SECUKINUMAB
     Indication: Rheumatoid arthritis
  9. COSENTYX [Suspect]
     Active Substance: SECUKINUMAB
     Indication: Psoriatic arthropathy
  10. LEFLUNOMIDE [Suspect]
     Active Substance: LEFLUNOMIDE
     Indication: Rheumatoid arthritis
     Dosage: ROA: UNK
  11. LEFLUNOMIDE [Suspect]
     Active Substance: LEFLUNOMIDE
     Dosage: ROA: UNKNOWN
  12. LEFLUNOMIDE [Suspect]
     Active Substance: LEFLUNOMIDE
     Route: 048
  13. LEFLUNOMIDE [Suspect]
     Active Substance: LEFLUNOMIDE
     Route: 048
  14. OXYCODONE HYDROCHLORIDE [Suspect]
     Active Substance: OXYCODONE HYDROCHLORIDE
     Indication: Product used for unknown indication
  15. OXYCODONE HYDROCHLORIDE [Suspect]
     Active Substance: OXYCODONE HYDROCHLORIDE
  16. TOPIRAMATE [Suspect]
     Active Substance: TOPIRAMATE
     Indication: Rheumatoid arthritis
     Dosage: ROA: UNKNOWN
  17. TOPIRAMATE [Suspect]
     Active Substance: TOPIRAMATE
     Indication: Migraine
     Dosage: UNKNOWN ROUTE
  18. TOPIRAMATE [Suspect]
     Active Substance: TOPIRAMATE
     Dosage: UNK ROUTE
  19. VITAMIN D3 [Suspect]
     Active Substance: CHOLECALCIFEROL
     Indication: Product used for unknown indication
  20. ADALIMUMAB [Suspect]
     Active Substance: ADALIMUMAB
     Indication: Rheumatoid arthritis
     Route: 058
  21. ADALIMUMAB [Suspect]
     Active Substance: ADALIMUMAB
  22. ERELZI [Suspect]
     Active Substance: ETANERCEPT-SZZS
     Indication: Rheumatoid arthritis
     Route: 058
  23. ERELZI [Suspect]
     Active Substance: ETANERCEPT-SZZS
  24. ERELZI [Suspect]
     Active Substance: ETANERCEPT-SZZS
  25. METHOTREXATE [Suspect]
     Active Substance: METHOTREXATE
     Indication: Rheumatoid arthritis
  26. METHOTREXATE [Suspect]
     Active Substance: METHOTREXATE
     Dosage: UNKNOWN ROUTE
     Route: 048
  27. METHOTREXATE [Suspect]
     Active Substance: METHOTREXATE
     Dosage: 25 MG, QW
     Route: 048
  28. METHOTREXATE [Suspect]
     Active Substance: METHOTREXATE
     Route: 050
  29. METHOTREXATE [Suspect]
     Active Substance: METHOTREXATE
  30. METHOTREXATE [Suspect]
     Active Substance: METHOTREXATE
     Dosage: 50 MG, QD
     Route: 048
  31. METHOTREXATE [Suspect]
     Active Substance: METHOTREXATE
     Route: 048
  32. METHOTREXATE [Suspect]
     Active Substance: METHOTREXATE
     Dosage: 50 MG, QD
     Route: 048
  33. METHOTREXATE [Suspect]
     Active Substance: METHOTREXATE
     Dosage: 25 MG, QW
     Route: 048
  34. METHOTREXATE [Suspect]
     Active Substance: METHOTREXATE
     Route: 048
  35. METHOTREXATE [Suspect]
     Active Substance: METHOTREXATE
     Dosage: INTRA-ARTERIAL
     Route: 048
  36. METHOTREXATE [Suspect]
     Active Substance: METHOTREXATE
     Dosage: 20 MG, QD
     Route: 048
  37. METHOTREXATE [Suspect]
     Active Substance: METHOTREXATE
     Dosage: 25 MG, QW
     Route: 048
  38. METHOTREXATE [Suspect]
     Active Substance: METHOTREXATE
     Dosage: 25 MG, QW
  39. METHOTREXATE [Suspect]
     Active Substance: METHOTREXATE
     Route: 048
  40. METHOTREXATE [Suspect]
     Active Substance: METHOTREXATE
     Route: 048
  41. METHOTREXATE [Suspect]
     Active Substance: METHOTREXATE
  42. METHOTREXATE [Suspect]
     Active Substance: METHOTREXATE
     Route: 048
  43. METHOTREXATE [Suspect]
     Active Substance: METHOTREXATE
     Route: 016
  44. METHOTREXATE [Suspect]
     Active Substance: METHOTREXATE
     Route: 050
  45. METHOTREXATE [Suspect]
     Active Substance: METHOTREXATE
     Dosage: ROA: SUBCUTANEOUS
     Route: 048
  46. METHOTREXATE [Suspect]
     Active Substance: METHOTREXATE
     Route: 050
  47. RITUXIMAB [Suspect]
     Active Substance: RITUXIMAB
     Indication: Rheumatoid arthritis
     Route: 016
  48. RITUXIMAB [Suspect]
     Active Substance: RITUXIMAB
  49. RITUXIMAB [Suspect]
     Active Substance: RITUXIMAB
     Route: 043
  50. RITUXIMAB [Suspect]
     Active Substance: RITUXIMAB
  51. RITUXIMAB [Suspect]
     Active Substance: RITUXIMAB
     Dosage: ROA: INTRAVENOUS BOLUS
  52. RITUXIMAB [Suspect]
     Active Substance: RITUXIMAB
     Dosage: UNKNOWN ROUTE
  53. RITUXIMAB [Suspect]
     Active Substance: RITUXIMAB
     Route: 016
  54. RITUXIMAB [Suspect]
     Active Substance: RITUXIMAB
  55. RITUXIMAB [Suspect]
     Active Substance: RITUXIMAB
  56. RITUXIMAB [Suspect]
     Active Substance: RITUXIMAB
  57. RITUXIMAB [Suspect]
     Active Substance: RITUXIMAB
     Dosage: UNKNOWN ROUTE
  58. RITUXIMAB [Suspect]
     Active Substance: RITUXIMAB
     Route: 058
  59. RITUXIMAB [Suspect]
     Active Substance: RITUXIMAB
  60. RITUXIMAB [Suspect]
     Active Substance: RITUXIMAB
     Dosage: UNKNOWN ROUTE
  61. RITUXIMAB [Suspect]
     Active Substance: RITUXIMAB
  62. RITUXIMAB [Suspect]
     Active Substance: RITUXIMAB
  63. RITUXIMAB [Suspect]
     Active Substance: RITUXIMAB
  64. RITUXIMAB [Suspect]
     Active Substance: RITUXIMAB
     Route: 043
  65. RITUXIMAB [Suspect]
     Active Substance: RITUXIMAB
  66. RITUXIMAB [Suspect]
     Active Substance: RITUXIMAB
     Dosage: UNKNOWN ROUTE
  67. RITUXIMAB [Suspect]
     Active Substance: RITUXIMAB
  68. RITUXIMAB [Suspect]
     Active Substance: RITUXIMAB
  69. RITUXIMAB [Suspect]
     Active Substance: RITUXIMAB
     Dosage: INTRAVENOUS BOLUS

REACTIONS (34)
  - Coeliac disease [Fatal]
  - Mobility decreased [Fatal]
  - Product label confusion [Fatal]
  - Insomnia [Fatal]
  - Weight increased [Fatal]
  - Back injury [Fatal]
  - Pain in extremity [Fatal]
  - Folliculitis [Fatal]
  - Musculoskeletal stiffness [Fatal]
  - Abdominal distension [Fatal]
  - Condition aggravated [Fatal]
  - Headache [Fatal]
  - Neck pain [Fatal]
  - Gastrointestinal disorder [Fatal]
  - Wound infection [Fatal]
  - Intentional product use issue [Fatal]
  - Grip strength decreased [Fatal]
  - Nail disorder [Fatal]
  - Wheezing [Fatal]
  - Hepatitis [Fatal]
  - Gait inability [Fatal]
  - Liver function test increased [Fatal]
  - Off label use [Fatal]
  - Muscular weakness [Fatal]
  - Gastrooesophageal reflux disease [Fatal]
  - Bursitis [Fatal]
  - Hypoaesthesia [Fatal]
  - Adverse reaction [Fatal]
  - Dyspepsia [Fatal]
  - Pneumonia [Fatal]
  - Injury [Fatal]
  - Fall [Fatal]
  - Malaise [Fatal]
  - Finger deformity [Fatal]
